FAERS Safety Report 5968272-X (Version None)
Quarter: 2008Q4

REPORT INFORMATION
  Report Type: 
  Country: None (occurrence: None)
  Receive Date: 20081126
  Receipt Date: 20081124
  Transmission Date: 20090506
  Serious: Yes (Other)
  Sender: FDA-Public Use
  Company Number: CA-BRISTOL-MYERS SQUIBB COMPANY-14052260

PATIENT
  Age: 53 Year
  Sex: Male

DRUGS (5)
  1. ORENCIA [Suspect]
     Indication: RHEUMATOID ARTHRITIS
     Dosage: DURTN-Q4.9JUL,6+31AUG,1+26OCT,9NOV,21DEC07,18JAN,15FEB,14MAR,25APR,23MAY,20JUN,18JUL,15AUG,19SEP08
     Route: 042
     Dates: start: 20070611
  2. METHOTREXATE [Concomitant]
  3. FOLIC ACID [Concomitant]
  4. VOLTAREN [Concomitant]
  5. CENTRUM [Concomitant]

REACTIONS (5)
  - ANIMAL BITE [None]
  - NASOPHARYNGITIS [None]
  - PRURITUS [None]
  - RASH MACULAR [None]
  - WHIPPLE'S DISEASE [None]
